FAERS Safety Report 10217671 (Version 1)
Quarter: 2014Q2

REPORT INFORMATION
  Report Type: Spontaneous
  Country: US (occurrence: US)
  Receive Date: 20140604
  Receipt Date: 20140604
  Transmission Date: 20141212
  Serious: No
  Sender: FDA-Public Use
  Company Number: US-GILEAD-2013-0078195

PATIENT
  Sex: 0

DRUGS (2)
  1. VIREAD [Suspect]
     Indication: PRODUCT USED FOR UNKNOWN INDICATION
     Dosage: UNK
     Dates: start: 201205, end: 20130621
  2. PEGINTERFERON [Concomitant]
     Dosage: UNK
     Dates: start: 201205, end: 201212

REACTIONS (3)
  - Oedema [Unknown]
  - Swelling face [Unknown]
  - Proteinuria [Unknown]
